FAERS Safety Report 26129619 (Version 1)
Quarter: 2025Q4

REPORT INFORMATION
  Report Type: Report from Study
  Country: US (occurrence: None)
  Receive Date: 20251208
  Receipt Date: 20251208
  Transmission Date: 20260118
  Serious: Yes (Other)
  Sender: UCB
  Company Number: US-UCBSA-2025076763

PATIENT
  Age: 25 Year
  Weight: 47.7 kg

DRUGS (1)
  1. FENFLURAMINE [Suspect]
     Active Substance: FENFLURAMINE
     Indication: Product used for unknown indication
     Dosage: 0.41 MILLIGRAM/KILOGRAM/DAY (19.8 MILLIGRAM/DAY)

REACTIONS (2)
  - Tricuspid valve incompetence [Unknown]
  - Mitral valve incompetence [Unknown]
